FAERS Safety Report 6332880-7 (Version None)
Quarter: 2009Q3

REPORT INFORMATION
  Report Type: 
  Country: None (occurrence: None)
  Receive Date: 20090828
  Receipt Date: 20090820
  Transmission Date: 20100115
  Serious: Yes (Hospitalization)
  Sender: FDA-Public Use
  Company Number: US-ELI_LILLY_AND_COMPANY-US200908004659

PATIENT
  Sex: Male

DRUGS (7)
  1. BYETTA [Suspect]
     Indication: TYPE 2 DIABETES MELLITUS
     Dosage: 5 UG, 2/D
     Route: 058
     Dates: start: 20060901, end: 20070901
  2. BYETTA [Suspect]
     Dosage: 10 UG, 2/D
     Route: 058
     Dates: start: 20070901
  3. LANTUS [Concomitant]
     Dosage: UNK, UNKNOWN
  4. ACTOS [Concomitant]
     Dosage: 45 MG, UNKNOWN
  5. METFORMIN HCL [Concomitant]
     Dosage: 1000 MG, UNKNOWN
  6. AMITRIPTYLINE [Concomitant]
     Dosage: UNK, UNKNOWN
  7. STARLIX [Concomitant]
     Dosage: UNK, UNKNOWN

REACTIONS (7)
  - ARTHRITIS [None]
  - BLOOD GLUCOSE INCREASED [None]
  - HIP ARTHROPLASTY [None]
  - INCORRECT DOSE ADMINISTERED [None]
  - KNEE ARTHROPLASTY [None]
  - MUSCULOSKELETAL STIFFNESS [None]
  - OFF LABEL USE [None]
